FAERS Safety Report 7823575-9 (Version None)
Quarter: 2011Q4

REPORT INFORMATION
  Report Type: 
  Country: None (occurrence: None)
  Receive Date: 20111019
  Receipt Date: 20111010
  Transmission Date: 20120403
  Serious: Yes (Hospitalization)
  Sender: FDA-Public Use
  Company Number: US-US-EMD SERONO, INC.-7086121

PATIENT
  Sex: Female

DRUGS (4)
  1. TYLENOL-500 [Concomitant]
     Indication: PREMEDICATION
     Route: 058
     Dates: start: 20110919
  2. REBIF [Suspect]
     Indication: PRODUCT USED FOR UNKNOWN INDICATION
     Route: 058
     Dates: start: 20110919, end: 20110930
  3. REBIF [Suspect]
     Route: 058
     Dates: start: 20111001
  4. UNSPECIFIED MEDICATION [Concomitant]
     Indication: BLOOD PRESSURE

REACTIONS (10)
  - HYPERHIDROSIS [None]
  - BALANCE DISORDER [None]
  - BLOOD SODIUM DECREASED [None]
  - BLOOD ELECTROLYTES ABNORMAL [None]
  - INFREQUENT BOWEL MOVEMENTS [None]
  - HYPERTENSION [None]
  - MUSCLE SPASMS [None]
  - DECREASED APPETITE [None]
  - VOMITING [None]
  - CEREBROVASCULAR ACCIDENT [None]
